FAERS Safety Report 10466324 (Version 1)
Quarter: 2014Q3

REPORT INFORMATION
  Report Type: Spontaneous
  Country: US (occurrence: None)
  Receive Date: 20140918
  Receipt Date: 20140918
  Transmission Date: 20150326
  Serious: Yes (Hospitalization, Other)
  Sender: FDA-Public Use
  Company Number: 2014JUB00137

PATIENT
  Age: 13 Year
  Sex: Female

DRUGS (1)
  1. BUPROPION [Suspect]
     Active Substance: BUPROPION

REACTIONS (9)
  - Pneumonia aspiration [None]
  - Blood pressure decreased [None]
  - Coma [None]
  - Intentional overdose [None]
  - Sinus tachycardia [None]
  - Areflexia [None]
  - Pupil fixed [None]
  - Paralysis flaccid [None]
  - Status epilepticus [None]
